FAERS Safety Report 15399359 (Version 1)
Quarter: 2018Q3

REPORT INFORMATION
  Report Type: Spontaneous
  Country: US (occurrence: US)
  Receive Date: 20180913
  Receipt Date: 20180913
  Transmission Date: 20181010
  Serious: Yes (Hospitalization)
  Sender: FDA-Public Use
  Company Number: None

PATIENT
  Age: 82 Year
  Sex: Female
  Weight: 51.75 kg

DRUGS (1)
  1. LEVOFLOXINE [Suspect]
     Active Substance: LEVOFLOXACIN
     Indication: PNEUMONIA
     Dates: start: 20180122, end: 20180125

REACTIONS (4)
  - Tendon pain [None]
  - Staphylococcal infection [None]
  - Tendon rupture [None]
  - Nosocomial infection [None]

NARRATIVE: CASE EVENT DATE: 20180123
